FAERS Safety Report 11514144 (Version 1)
Quarter: 2015Q3

REPORT INFORMATION
  Report Type: Spontaneous
  Country: US (occurrence: US)
  Receive Date: 20150903
  Receipt Date: 20150903
  Transmission Date: 20151125
  Serious: No
  Sender: FDA-Public Use
  Company Number: US-ELI_LILLY_AND_COMPANY-US201212003687

PATIENT
  Sex: Female

DRUGS (1)
  1. CYMBALTA [Suspect]
     Active Substance: DULOXETINE HYDROCHLORIDE
     Indication: SPINAL COLUMN STENOSIS
     Dosage: 30 MG AT NIGHT

REACTIONS (4)
  - Vomiting [Unknown]
  - Tremor [Unknown]
  - Nausea [Unknown]
  - Off label use [Unknown]
